FAERS Safety Report 8805312 (Version 3)
Quarter: 2012Q4

REPORT INFORMATION
  Report Type: 
  Country: CN (occurrence: CN)
  Receive Date: 20120924
  Receipt Date: 20121105
  Transmission Date: 20130627
  Serious: Yes (Death, Hospitalization, Other)
  Sender: FDA-Public Use
  Company Number: CN-ROCHE-1129484

PATIENT
  Sex: Female
  Weight: 68 kg

DRUGS (3)
  1. HERCEPTIN [Suspect]
     Indication: BREAST CANCER
     Route: 041
     Dates: start: 20111202
  2. HERCEPTIN [Suspect]
     Indication: METASTASES TO LYMPH NODES
     Route: 041
     Dates: start: 20111223, end: 20120428
  3. ZADAXIN [Concomitant]
     Indication: IMMUNE ENHANCEMENT THERAPY
     Route: 058
     Dates: start: 20111202

REACTIONS (7)
  - Pulmonary arterial hypertension [Fatal]
  - Cardiomegaly [Not Recovered/Not Resolved]
  - Pericardial effusion [Not Recovered/Not Resolved]
  - Cardiogenic shock [Not Recovered/Not Resolved]
  - Multi-organ disorder [Unknown]
  - Pulmonary embolism [Unknown]
  - Cardiac failure [Unknown]
